FAERS Safety Report 9227115 (Version 1)
Quarter: 2013Q2

REPORT INFORMATION
  Report Type: Report from Study
  Country: US (occurrence: US)
  Receive Date: 20130412
  Receipt Date: 20130412
  Transmission Date: 20140414
  Serious: Yes (Hospitalization)
  Sender: FDA-Public Use
  Company Number: US-JNJFOC-20130404681

PATIENT
  Age: 66 Year
  Sex: Female
  Weight: 84.37 kg

DRUGS (12)
  1. XARELTO [Suspect]
     Indication: THROMBOSIS PROPHYLAXIS
     Route: 048
     Dates: start: 201301
  2. XARELTO [Suspect]
     Indication: THROMBOSIS PROPHYLAXIS
     Route: 048
     Dates: start: 201212, end: 201301
  3. XARELTO [Suspect]
     Indication: THROMBOSIS PROPHYLAXIS
     Route: 048
     Dates: start: 201211, end: 201212
  4. CLARITIN [Concomitant]
     Indication: ASTHMA
     Route: 048
     Dates: start: 201304
  5. LISINOPRIL [Concomitant]
     Indication: HYPERTENSION
     Route: 048
  6. METOPROLOL [Concomitant]
     Indication: HYPERTENSION
     Route: 048
  7. HYDROCHLOROTHIAZIDE [Concomitant]
     Indication: HYPERTENSION
     Route: 048
  8. PEPCID AC [Concomitant]
     Indication: GASTRIC DISORDER
     Route: 048
  9. COLACE [Concomitant]
     Indication: ABNORMAL FAECES
     Route: 048
  10. ASPIRIN [Concomitant]
     Indication: CARDIOVASCULAR EVENT PROPHYLAXIS
     Route: 048
  11. ASMANEX [Concomitant]
     Indication: ASTHMA
     Route: 055
  12. XOPENEX [Concomitant]
     Indication: ASTHMA
     Route: 055

REACTIONS (10)
  - Malaise [Recovered/Resolved]
  - Syncope [Recovered/Resolved]
  - Head injury [Recovered/Resolved]
  - Epistaxis [Recovered/Resolved]
  - Thrombosis [Not Recovered/Not Resolved]
  - Renal haemorrhage [Recovered/Resolved]
  - Malaise [Recovered/Resolved]
  - Blood urine present [Recovered/Resolved]
  - Chromaturia [Not Recovered/Not Resolved]
  - Hernia [Not Recovered/Not Resolved]
